FAERS Safety Report 19358105 (Version 1)
Quarter: 2021Q2

REPORT INFORMATION
  Report Type: Spontaneous
  Country: US (occurrence: US)
  Receive Date: 20210531
  Receipt Date: 20210531
  Transmission Date: 20210717
  Serious: No
  Sender: FDA-Public Use
  Company Number: US-ORGANON-O2105USA002075

PATIENT
  Sex: Male

DRUGS (6)
  1. CLONIDINE. [Concomitant]
     Active Substance: CLONIDINE
     Route: 048
  2. LORATADINE. [Concomitant]
     Active Substance: LORATADINE
     Route: 048
  3. FAMOTIDINE. [Concomitant]
     Active Substance: FAMOTIDINE
     Route: 048
  4. FLOVENT HFA [Concomitant]
     Active Substance: FLUTICASONE PROPIONATE
     Dosage: UNK
  5. SINGULAIR [Suspect]
     Active Substance: MONTELUKAST SODIUM
     Indication: ASTHMA
     Dosage: UNK MILLIGRAM
     Route: 048
  6. ARIPIPRAZOLE. [Concomitant]
     Active Substance: ARIPIPRAZOLE
     Dosage: UNK
     Route: 048

REACTIONS (1)
  - Product use issue [Unknown]

NARRATIVE: CASE EVENT DATE: 2021
